FAERS Safety Report 14511200 (Version 1)
Quarter: 2018Q1

REPORT INFORMATION
  Report Type: Spontaneous
  Country: US (occurrence: US)
  Receive Date: 20180209
  Receipt Date: 20180209
  Transmission Date: 20180509
  Serious: Yes (Other)
  Sender: FDA-Public Use
  Company Number: US-009507513-1802USA000934

PATIENT
  Sex: Male

DRUGS (1)
  1. PROPECIA [Suspect]
     Active Substance: FINASTERIDE
     Indication: ANDROGENETIC ALOPECIA
     Route: 048

REACTIONS (7)
  - Prostate cancer [Unknown]
  - Memory impairment [Unknown]
  - Drug withdrawal syndrome [Unknown]
  - Cerebral disorder [Unknown]
  - Depression [Unknown]
  - Sexual dysfunction [Unknown]
  - Libido decreased [Unknown]
